FAERS Safety Report 4458322-4 (Version None)
Quarter: 2004Q3

REPORT INFORMATION
  Report Type: 
  Country: None (occurrence: None)
  Receive Date: 20040917
  Receipt Date: 20040309
  Transmission Date: 20050211
  Serious: Yes (Other)
  Sender: FDA-Public Use
  Company Number: US-JNJFOC-20040201151

PATIENT
  Age: 62 Year
  Sex: Female
  Weight: 77.1115 kg

DRUGS (24)
  1. TOPAMAX [Suspect]
     Dosage: 25 MG, 4 IN 1 DAY, ORAL
     Route: 048
     Dates: start: 20030729
  2. TRILEPTAL [Suspect]
     Dosage: 300 MG, 2 IN 1 DAY, ORAL
     Route: 048
  3. ALTACE [Concomitant]
  4. ALPAZOLAM (ALPRAZOLAM) [Concomitant]
  5. ASPIRIN [Concomitant]
  6. CALCIUM (CALCIUM) [Concomitant]
  7. CLIMARA PATCH (ESTRADIOL) [Concomitant]
  8. FLOVEN (FLUTICASONE PRIOPIONATE) INHALATION [Concomitant]
  9. FORADIL (FORMOTEROL FUMARATE) AEROSOLS [Concomitant]
  10. FUROSEMIDE [Concomitant]
  11. GABITRIL [Concomitant]
  12. HYDOCODONE/APAP (HYDROCODONE) [Concomitant]
  13. LEVOTHYROXINE SODIUM [Concomitant]
  14. LIPITOR [Concomitant]
  15. METFORMIN HCL [Concomitant]
  16. METOLAZONE [Concomitant]
  17. NOVOLOG 70/30 (INSULIN ASPART) [Concomitant]
  18. PHENERGAN [Concomitant]
  19. POTASSIUM CLORIDE ER (POTASSIUM CHLORIDE) TABLETS [Concomitant]
  20. PREVACID [Concomitant]
  21. VENLAFAXINE HCL [Concomitant]
  22. VERAPAMIL [Concomitant]
  23. VITAMIN D [Concomitant]
  24. AMBIEN [Concomitant]

REACTIONS (3)
  - CHEST PAIN [None]
  - CONVULSION [None]
  - ELECTROCARDIOGRAM ABNORMAL [None]
